FAERS Safety Report 7626142-5 (Version None)
Quarter: 2011Q3

REPORT INFORMATION
  Report Type: 
  Country: None (occurrence: None)
  Receive Date: 20110713
  Receipt Date: 20110628
  Transmission Date: 20111222
  Serious: Yes (Life-Threatening, Hospitalization, Other)
  Sender: FDA-Public Use
  Company Number: 2011MA008148

PATIENT
  Age: 11 Month
  Sex: Male
  Weight: 12 kg

DRUGS (1)
  1. BUPROPION HYDROCHLORIDE (WELLBUTRIN XL) [Suspect]
     Indication: OVERDOSE
     Dosage: 9000 MG, 1X, PO
     Route: 048

REACTIONS (18)
  - MYDRIASIS [None]
  - HYPERGLYCAEMIA [None]
  - VENTRICULAR EXTRASYSTOLES [None]
  - ASPIRATION [None]
  - METABOLIC ACIDOSIS [None]
  - GRAND MAL CONVULSION [None]
  - RESPIRATORY DISTRESS [None]
  - RESPIRATORY FAILURE [None]
  - ACCIDENTAL DRUG INTAKE BY CHILD [None]
  - VENTRICULAR TACHYCARDIA [None]
  - BALANCE DISORDER [None]
  - HYPOTENSION [None]
  - DEPRESSED LEVEL OF CONSCIOUSNESS [None]
  - HYPOXIA [None]
  - UNRESPONSIVE TO STIMULI [None]
  - TACHYCARDIA [None]
  - SINUS TACHYCARDIA [None]
  - ACCIDENTAL OVERDOSE [None]
